FAERS Safety Report 4295401-9 (Version None)
Quarter: 2004Q1

REPORT INFORMATION
  Report Type: 
  Country: None (occurrence: None)
  Receive Date: 20040216
  Receipt Date: 20030716
  Transmission Date: 20041129
  Serious: Yes (Other)
  Sender: FDA-Public Use
  Company Number: US-GLAXOSMITHKLINE-A0417859A

PATIENT
  Age: 3 Year
  Sex: Male

DRUGS (7)
  1. LAMICTAL [Suspect]
     Dosage: 75MG THREE TIMES PER DAY
     Route: 048
     Dates: start: 20010101
  2. MINERAL OIL [Suspect]
     Route: 065
     Dates: start: 20030701
  3. TOPAMAX [Concomitant]
  4. BACLOFEN [Concomitant]
  5. CALCIUM CARBONATE [Concomitant]
     Route: 065
  6. UNSPECIFIED MEDICATION [Concomitant]
  7. MULTI-VITAMINS [Concomitant]

REACTIONS (1)
  - CONVULSION [None]
